FAERS Safety Report 18111002 (Version 1)
Quarter: 2020Q3

REPORT INFORMATION
  Report Type: Report from Study
  Country: IT (occurrence: IT)
  Receive Date: 20200804
  Receipt Date: 20200804
  Transmission Date: 20201103
  Serious: Yes (Hospitalization)
  Sender: FDA-Public Use
  Company Number: IT-JNJFOC-20200800316

PATIENT
  Age: 42 Year
  Sex: Male
  Weight: 80 kg

DRUGS (1)
  1. SIMPONI [Suspect]
     Active Substance: GOLIMUMAB
     Indication: RHEUMATOID ARTHRITIS
     Route: 058
     Dates: start: 20191120, end: 20200220

REACTIONS (1)
  - Nosocomial infection [Recovered/Resolved]

NARRATIVE: CASE EVENT DATE: 20200327
